FAERS Safety Report 15860374 (Version 1)
Quarter: 2019Q1

REPORT INFORMATION
  Report Type: Spontaneous
  Country: GB (occurrence: GB)
  Receive Date: 20190123
  Receipt Date: 20190123
  Transmission Date: 20190417
  Serious: Yes (Other)
  Sender: FDA-Public Use
  Company Number: GB-ANIPHARMA-2019-UK-000008

PATIENT
  Age: 57 Year
  Sex: Female
  Weight: 92 kg

DRUGS (5)
  1. SECURON [Concomitant]
     Active Substance: VERAPAMIL HYDROCHLORIDE
     Dosage: 1 DF DAILY
     Route: 065
     Dates: start: 20170804
  2. LANSOPRAZOLE. [Concomitant]
     Active Substance: LANSOPRAZOLE
     Dosage: 1 DF DAILY
     Route: 065
     Dates: start: 20170804
  3. CANDESARTAN CILEXETIL. [Suspect]
     Active Substance: CANDESARTAN CILEXETIL
     Indication: PRODUCT USED FOR UNKNOWN INDICATION
     Route: 048
     Dates: start: 20181227
  4. VENTOLIN [Concomitant]
     Active Substance: ALBUTEROL SULFATE
     Dosage: PUFFS FOUR TIMES DAILY
     Route: 065
     Dates: start: 20170804
  5. PARACETAMOL [Suspect]
     Active Substance: ACETAMINOPHEN
     Dosage: ONE OR TWO TO BE TAKEN FOUR TIMES DAILY.
     Route: 065
     Dates: start: 20170804

REACTIONS (2)
  - Somnolence [Recovered/Resolved]
  - Confusional state [Recovered/Resolved]

NARRATIVE: CASE EVENT DATE: 20181227
